FAERS Safety Report 4838976-0 (Version None)
Quarter: 2005Q4

REPORT INFORMATION
  Report Type: 
  Country: None (occurrence: None)
  Receive Date: 20051031
  Receipt Date: 20050831
  Transmission Date: 20060501
  Serious: No
  Sender: FDA-Public Use
  Company Number: 200516171US

PATIENT
  Age: 38 Year
  Sex: Female
  Weight: 67 kg

DRUGS (3)
  1. KETEK [Suspect]
     Indication: ACUTE SINUSITIS
     Dosage: 800 MG QD PO
     Route: 048
     Dates: start: 20050806
  2. ZYRTEC [Concomitant]
  3. FLUTICASONE PROPIONATE (FLONASE) [Concomitant]

REACTIONS (4)
  - ARTHRALGIA [None]
  - EPISTAXIS [None]
  - JOINT SWELLING [None]
  - VISION BLURRED [None]
